FAERS Safety Report 5548071-3 (Version None)
Quarter: 2007Q4

REPORT INFORMATION
  Report Type: 
  Country: None (occurrence: None)
  Receive Date: 20071206
  Receipt Date: 20071120
  Transmission Date: 20080405
  Serious: Yes (Death, Life-Threatening, Hospitalization, Other)
  Sender: FDA-Public Use
  Company Number: 07HR000977

PATIENT
  Age: 44 Year
  Sex: Male

DRUGS (8)
  1. PAROXETINE [Suspect]
     Indication: DRUG USE FOR UNKNOWN INDICATION
     Dosage: 20 MG, QD, ORAL
     Route: 048
  2. FLUPHENAZINE [Concomitant]
  3. ALPRAZOLAM [Concomitant]
  4. OLANZAPINE [Concomitant]
  5. BIPERIDEN HYDROCHLORIDE TAB [Concomitant]
  6. HALOPERIDOL [Concomitant]
  7. BROMAZEPAM (BROMAZEPAM) [Concomitant]
  8. DIAZEPAM [Concomitant]

REACTIONS (25)
  - ABDOMINAL PAIN [None]
  - BASE EXCESS DECREASED [None]
  - BLOOD BICARBONATE DECREASED [None]
  - BRADYPNOEA [None]
  - BRAIN OEDEMA [None]
  - CARDIAC ARREST [None]
  - COMA [None]
  - DISORIENTATION [None]
  - DRUG INTERACTION [None]
  - ELECTROLYTE IMBALANCE [None]
  - GENERAL PHYSICAL HEALTH DETERIORATION [None]
  - HYPERGLYCAEMIA [None]
  - HYPONATRAEMIA [None]
  - HYPOTENSION [None]
  - HYPOVENTILATION [None]
  - INAPPROPRIATE ANTIDIURETIC HORMONE SECRETION [None]
  - KETONURIA [None]
  - LOSS OF CONSCIOUSNESS [None]
  - NAUSEA [None]
  - PANCREATITIS HAEMORRHAGIC [None]
  - PAPILLOEDEMA [None]
  - PCO2 DECREASED [None]
  - PO2 DECREASED [None]
  - PROSTRATION [None]
  - VERTIGO [None]
